FAERS Safety Report 8487011-4 (Version None)
Quarter: 2012Q3

REPORT INFORMATION
  Report Type: 
  Country: None (occurrence: None)
  Receive Date: 20120704
  Receipt Date: 20120629
  Transmission Date: 20120928
  Serious: Yes (Other)
  Sender: FDA-Public Use
  Company Number: PHHY2011US18979

PATIENT
  Sex: Female

DRUGS (16)
  1. METOPROLOL SUCCINATE [Concomitant]
     Dosage: 50 MG, QD
     Route: 048
  2. COLACE [Concomitant]
     Indication: ABNORMAL FAECES
     Dosage: 100 MG, QD
     Route: 048
  3. PRAVASTATIN [Concomitant]
     Indication: BLOOD CHOLESTEROL
     Dosage: 40 MG, QD
     Route: 048
  4. RANITIDINE [Concomitant]
     Indication: GASTROOESOPHAGEAL REFLUX DISEASE
     Dosage: 150 MG, QD
     Route: 048
  5. MULTI-VITAMINS [Concomitant]
     Dosage: UNK UKN, QD
  6. ZANTAC [Concomitant]
     Dosage: UNK UKN, UNK
  7. OMEPRAZOLE [Concomitant]
     Indication: ABDOMINAL DISCOMFORT
     Dosage: 20 MG, QD
     Route: 048
  8. BYSTOLIC [Concomitant]
     Indication: CARDIAC DISORDER
     Dosage: 5 MG, QD
     Route: 048
  9. GARLIC [Concomitant]
     Indication: BLOOD PRESSURE
     Dosage: 1000 MG, QD
     Route: 048
  10. PRILOSEC [Concomitant]
     Indication: GASTROOESOPHAGEAL REFLUX DISEASE
     Dosage: 20 MG, QD
     Route: 048
  11. RECLAST [Suspect]
     Indication: OSTEOPOROSIS
     Dosage: 5 MG/100ML, ANNUALLY
     Route: 042
     Dates: start: 20110202
  12. GLUCOSAMINE [Concomitant]
     Indication: ARTHROPATHY
     Dosage: 2000 MG, BID
     Route: 048
  13. BENADRYL [Concomitant]
     Indication: MULTIPLE ALLERGIES
     Dosage: 25 MG, QD
  14. ASPIRIN [Concomitant]
     Indication: CARDIAC DISORDER
     Dosage: 81 MG, QD
     Route: 048
  15. RECLAST [Suspect]
     Route: 042
     Dates: start: 20120316
  16. COQ10 [Concomitant]
     Dosage: 200 MG, QD
     Route: 048

REACTIONS (13)
  - RASH MACULAR [None]
  - NAUSEA [None]
  - BLOOD CHOLESTEROL INCREASED [None]
  - JAW DISORDER [None]
  - ORAL PAIN [None]
  - MYALGIA [None]
  - MUSCULOSKELETAL PAIN [None]
  - PAIN IN EXTREMITY [None]
  - MASS [None]
  - PRURITUS [None]
  - MUSCLE SPASMS [None]
  - PERIARTHRITIS [None]
  - PAIN [None]
